FAERS Safety Report 7755134-0 (Version None)
Quarter: 2011Q3

REPORT INFORMATION
  Report Type: 
  Country: None (occurrence: None)
  Receive Date: 20110916
  Receipt Date: 20110912
  Transmission Date: 20111222
  Serious: No
  Sender: FDA-Public Use
  Company Number: US-PFIZER INC-2011215671

PATIENT

DRUGS (1)
  1. NORVASC [Suspect]
     Dosage: 5 MG, UNK (5 MG FOR 3-4 YEARS)

REACTIONS (1)
  - NAUSEA [None]
